FAERS Safety Report 5034655-8 (Version None)
Quarter: 2006Q2

REPORT INFORMATION
  Report Type: 
  Country: None (occurrence: None)
  Receive Date: 20060621
  Receipt Date: 20060619
  Transmission Date: 20061013
  Serious: Yes (Other)
  Sender: FDA-Public Use
  Company Number: 200612506GDS

PATIENT
  Age: 42 Year
  Sex: Female
  Weight: 60 kg

DRUGS (1)
  1. ASPIRIN [Suspect]
     Indication: MIGRAINE
     Dosage: 500 MG, BID, ORAL
     Route: 048

REACTIONS (3)
  - DIPLOPIA [None]
  - DISEASE PROGRESSION [None]
  - VERTIGO [None]
